FAERS Safety Report 25480602 (Version 3)
Quarter: 2025Q3

REPORT INFORMATION
  Report Type: Spontaneous
  Country: US (occurrence: US)
  Receive Date: 20250625
  Receipt Date: 20250812
  Transmission Date: 20251021
  Serious: No
  Sender: PFIZER
  Company Number: US-PFIZER INC-202500125452

PATIENT
  Age: 8 Year
  Sex: Male
  Weight: 25.85 kg

DRUGS (4)
  1. GENOTROPIN [Suspect]
     Active Substance: SOMATROPIN
     Indication: Hypopituitarism
     Dosage: 1.4MG (4 DAYS) ALTERNATING WITH 1.6MG (2 DAYS)
  2. GENOTROPIN [Suspect]
     Active Substance: SOMATROPIN
     Dosage: 1.4MG (4 DAYS) ALTERNATING WITH 1.6MG (2 DAYS)
  3. CLONIDINE [Concomitant]
     Active Substance: CLONIDINE
  4. GUANFACINE [Concomitant]
     Active Substance: GUANFACINE

REACTIONS (2)
  - Device mechanical issue [Unknown]
  - Device power source issue [Unknown]
